FAERS Safety Report 18613915 (Version 1)
Quarter: 2020Q4

REPORT INFORMATION
  Report Type: Spontaneous
  Country: US (occurrence: US)
  Receive Date: 20201214
  Receipt Date: 20201214
  Transmission Date: 20210114
  Serious: No
  Sender: FDA-Public Use
  Company Number: US-NOVOPROD-718080

PATIENT
  Sex: Female

DRUGS (2)
  1. LEVEMIR [Suspect]
     Active Substance: INSULIN DETEMIR
     Indication: TYPE 2 DIABETES MELLITUS
     Dosage: BETWEEN 50 TO 60 UNIT PER DAY
     Route: 058
     Dates: start: 2018
  2. HUMALOG [Concomitant]
     Active Substance: INSULIN LISPRO
     Indication: TYPE 2 DIABETES MELLITUS
     Dosage: UNK
     Route: 058

REACTIONS (8)
  - Blood glucose increased [Unknown]
  - Blood glucose decreased [Not Recovered/Not Resolved]
  - Diarrhoea [Unknown]
  - Feeling abnormal [Unknown]
  - Feeling cold [Unknown]
  - Feeling hot [Unknown]
  - Pruritus [Unknown]
  - Cold sweat [Unknown]

NARRATIVE: CASE EVENT DATE: 2019
